FAERS Safety Report 6248233-6 (Version None)
Quarter: 2009Q2

REPORT INFORMATION
  Report Type: 
  Country: None (occurrence: None)
  Receive Date: 20090623
  Receipt Date: 20090609
  Transmission Date: 20091009
  Serious: Yes (Death, Hospitalization)
  Sender: FDA-Public Use
  Company Number: ADE# 09-243DPR

PATIENT
  Age: 85 Year
  Sex: Female

DRUGS (1)
  1. DIGOXIN [Suspect]
     Indication: AORTIC VALVE REPLACEMENT
     Dosage: ONE TABLET DAILY

REACTIONS (2)
  - FATIGUE [None]
  - MYOCARDIAL INFARCTION [None]
